FAERS Safety Report 24441549 (Version 2)
Quarter: 2024Q4

REPORT INFORMATION
  Report Type: Report from Study
  Country: US (occurrence: US)
  Receive Date: 20241016
  Receipt Date: 20241017
  Transmission Date: 20250115
  Serious: No
  Sender: ROCHE
  Company Number: US-ROCHE-3487709

PATIENT
  Age: 18 Year
  Sex: Male
  Weight: 95.1 kg

DRUGS (2)
  1. HEMLIBRA [Suspect]
     Active Substance: EMICIZUMAB-KXWH
     Indication: Haemophilia
     Dosage: (1.2ML FROM 3-60MG VIALS AND 2.08ML FROM3-105MG VIALS) SUBCUTANEOUSLY EVERY 28 DAY(S). SEPARATE INTO
     Route: 058
  2. HEMLIBRA [Suspect]
     Active Substance: EMICIZUMAB-KXWH
     Indication: Factor VIII deficiency

REACTIONS (2)
  - Off label use [Unknown]
  - No adverse event [Unknown]
